FAERS Safety Report 25841018 (Version 1)
Quarter: 2025Q3

REPORT INFORMATION
  Report Type: Spontaneous
  Country: US (occurrence: None)
  Receive Date: 20250923
  Receipt Date: 20250923
  Transmission Date: 20251020
  Serious: Yes (Hospitalization)
  Sender: FDA-CTU
  Company Number: None

PATIENT
  Age: 30 Year
  Sex: Male

DRUGS (13)
  1. ENVARSUS XR [Suspect]
     Active Substance: TACROLIMUS
     Indication: Transplant
     Dosage: FREQUENCY : DAILY;?
     Route: 048
     Dates: start: 20250714
  2. ENVARSUS XR [Suspect]
     Active Substance: TACROLIMUS
     Indication: Transplant
     Dosage: FREQUENCY : DAILY;?
     Route: 048
     Dates: start: 20221004
  3. ROSUVASTATIN [Concomitant]
     Active Substance: ROSUVASTATIN
  4. ASPIRIN [Concomitant]
     Active Substance: ASPIRIN
  5. NALTREXONE [Concomitant]
     Active Substance: NALTREXONE
  6. OLANZAPINE [Concomitant]
     Active Substance: OLANZAPINE
  7. GABAPENTIN [Concomitant]
     Active Substance: GABAPENTIN
  8. SIROLIMUS [Concomitant]
     Active Substance: SIROLIMUS
  9. HYDROXYZINE [Concomitant]
     Active Substance: HYDROXYZINE HYDROCHLORIDE
  10. NICOTINE [Concomitant]
     Active Substance: NICOTINE
  11. PALIPERIDONE [Concomitant]
     Active Substance: PALIPERIDONE
  12. AMLODIPINE [Concomitant]
     Active Substance: AMLODIPINE BESYLATE
  13. prazosine 1mg [Concomitant]

REACTIONS (3)
  - Complications of transplant surgery [None]
  - Mental disorder [None]
  - Illness [None]

NARRATIVE: CASE EVENT DATE: 20250823
